FAERS Safety Report 4685226-4 (Version None)
Quarter: 2005Q2

REPORT INFORMATION
  Report Type: 
  Country: None (occurrence: None)
  Receive Date: 20050608
  Receipt Date: 20050316
  Transmission Date: 20051028
  Serious: Yes (Other)
  Sender: FDA-Public Use
  Company Number: PHBS2005JP03897

PATIENT
  Age: 73 Year
  Sex: Male
  Weight: 55 kg

DRUGS (4)
  1. SANDOSTATIN [Suspect]
     Indication: PANCREATIC LEAK
     Dosage: 200 UG/DAY
     Route: 058
     Dates: start: 20050223, end: 20050313
  2. SANDOSTATIN [Suspect]
     Dosage: 100 UG/DAY
     Route: 058
     Dates: start: 20050314, end: 20050314
  3. FOY [Concomitant]
     Route: 042
  4. FOIPAN [Concomitant]
     Route: 065

REACTIONS (3)
  - BASOPHIL PERCENTAGE INCREASED [None]
  - EOSINOPHIL COUNT INCREASED [None]
  - WHITE BLOOD CELL COUNT INCREASED [None]
